FAERS Safety Report 13084676 (Version 1)
Quarter: 2017Q1

REPORT INFORMATION
  Report Type: Spontaneous
  Country: US (occurrence: US)
  Receive Date: 20170103
  Receipt Date: 20170103
  Transmission Date: 20170428
  Serious: No
  Sender: FDA-Public Use
  Company Number: None

PATIENT
  Sex: Male

DRUGS (1)
  1. STELARA [Suspect]
     Active Substance: USTEKINUMAB
     Indication: PSORIASIS
     Dosage: 45MG EVERY 12 WEEKS SUBCUTANEOUSLY
     Route: 058
     Dates: start: 20160322, end: 20161003

REACTIONS (4)
  - Hypersensitivity [None]
  - Musculoskeletal stiffness [None]
  - Arthritis [None]
  - Inflammation [None]
